FAERS Safety Report 18159015 (Version 4)
Quarter: 2020Q3

REPORT INFORMATION
  Report Type: Report from Study
  Country: HU (occurrence: HU)
  Receive Date: 20200817
  Receipt Date: 20200910
  Transmission Date: 20201103
  Serious: Yes (Other)
  Sender: FDA-Public Use
  Company Number: NVSC2020HU225253

PATIENT
  Age: 68 Year

DRUGS (3)
  1. KISQALI [Suspect]
     Active Substance: RIBOCICLIB
     Dosage: 400 MG, QD
     Route: 065
     Dates: start: 20200903
  2. KISQALI [Suspect]
     Active Substance: RIBOCICLIB
     Dosage: UNK
     Route: 065
     Dates: start: 20200825, end: 20200902
  3. KISQALI [Suspect]
     Active Substance: RIBOCICLIB
     Indication: PRODUCT USED FOR UNKNOWN INDICATION
     Dosage: UNK
     Route: 065
     Dates: start: 20200724, end: 20200813

REACTIONS (5)
  - White blood cell count decreased [Unknown]
  - Neutropenia [Unknown]
  - Abdominal pain upper [Unknown]
  - Pleural neoplasm [Unknown]
  - Cough [Unknown]

NARRATIVE: CASE EVENT DATE: 202008
